FAERS Safety Report 19870974 (Version 2)
Quarter: 2021Q3

REPORT INFORMATION
  Report Type: Spontaneous
  Country: DE (occurrence: DE)
  Receive Date: 20210923
  Receipt Date: 20210928
  Transmission Date: 20211014
  Serious: Yes (Hospitalization)
  Sender: FDA-Public Use
  Company Number: DE-AUROBINDO-AUR-APL-2021-039536

PATIENT
  Age: 70 Year
  Sex: Female

DRUGS (8)
  1. APIXABAN [Concomitant]
     Active Substance: APIXABAN
     Indication: PROPHYLAXIS
     Dosage: 2.5 MILLIGRAM, TWO TIMES A DAY
     Route: 048
  2. PANTOPRAZOLE [Concomitant]
     Active Substance: PANTOPRAZOLE
     Indication: PROPHYLAXIS
     Dosage: 20 MILLIGRAM, ONCE A DAY
     Route: 048
  3. PIPERACILLIN AND TAZOBACTAM [Suspect]
     Active Substance: PIPERACILLIN SODIUM\TAZOBACTAM SODIUM
     Indication: ADVERSE EVENT
     Dosage: UNK UNK, ONCE A DAY
     Route: 048
     Dates: start: 20210625, end: 20210701
  4. PARACETAMOL [Concomitant]
     Active Substance: ACETAMINOPHEN
     Indication: PROPHYLAXIS
     Dosage: 500 MG (INTERMITTENT)
     Route: 048
  5. VALACICLOVIR [Suspect]
     Active Substance: VALACYCLOVIR HYDROCHLORIDE
     Indication: ADVERSE EVENT
     Dosage: UNK (ONCE A DAY)
     Route: 048
     Dates: start: 20210616
  6. AMPHOTERICIN B. [Suspect]
     Active Substance: AMPHOTERICIN B
     Indication: ADVERSE EVENT
     Dosage: 100 MILLILITER, ONCE A DAY
     Route: 048
     Dates: start: 20210626, end: 20210706
  7. CEFPODOXIME PROXETIL. [Suspect]
     Active Substance: CEFPODOXIME PROXETIL
     Indication: ADVERSE EVENT
     Dosage: UNK (ONCE A DAY, DOSE AS REQUIRED)
     Route: 048
     Dates: start: 20210702, end: 20210706
  8. LEVOFLOXACIN FILMCOATED TABLET [Suspect]
     Active Substance: LEVOFLOXACIN
     Indication: ADVERSE EVENT
     Dosage: UNK (ONCE A DAY, DOSE AS REQUIRED)
     Route: 048
     Dates: start: 20210622, end: 20210625

REACTIONS (2)
  - Disease progression [Not Recovered/Not Resolved]
  - Mucosal inflammation [Recovered/Resolved]

NARRATIVE: CASE EVENT DATE: 20210622
